FAERS Safety Report 5510247-9 (Version None)
Quarter: 2007Q4

REPORT INFORMATION
  Report Type: 
  Country: None (occurrence: None)
  Receive Date: 20071108
  Receipt Date: 20071030
  Transmission Date: 20080405
  Serious: Yes (Other)
  Sender: FDA-Public Use
  Company Number: FR-ASTRAZENECA-2007CG01543

PATIENT
  Age: 19452 Day
  Sex: Female

DRUGS (6)
  1. CRESTOR [Suspect]
     Route: 048
     Dates: start: 20071016, end: 20071020
  2. TRINITRINE [Concomitant]
  3. LOSEC [Concomitant]
     Route: 048
  4. ASPIRIN [Concomitant]
  5. CARVEDILOL [Concomitant]
  6. TILDIEM [Concomitant]

REACTIONS (1)
  - APHTHOUS STOMATITIS [None]
